FAERS Safety Report 5321834-5 (Version None)
Quarter: 2007Q1

REPORT INFORMATION
  Report Type: 
  Country: None (occurrence: None)
  Receive Date: 20070215
  Receipt Date: 20061106
  Transmission Date: 20070707
  Serious: No
  Sender: FDA-Public Use
  Company Number: 200616537BWH

PATIENT
  Sex: Female

DRUGS (3)
  1. NEXAVAR [Suspect]
     Indication: RENAL CELL CARCINOMA STAGE UNSPECIFIED
     Dosage: 400 MG, BID, ORAL
     Route: 048
     Dates: start: 20061001, end: 20061103
  2. ANTIHYPERTENSIVE (NOS) [Concomitant]
  3. THYROID MEDICATION (NOS) [Concomitant]

REACTIONS (1)
  - BLISTER [None]
